FAERS Safety Report 6192780-2 (Version None)
Quarter: 2009Q2

REPORT INFORMATION
  Report Type: 
  Country: None (occurrence: None)
  Receive Date: 20090518
  Receipt Date: 20090216
  Transmission Date: 20091009
  Serious: No
  Sender: FDA-Public Use
  Company Number: US-TYCO HEALTHCARE/MALLINCKRODT-T200900550

PATIENT
  Sex: Female
  Weight: 54.422 kg

DRUGS (4)
  1. ACETAMINOPHEN AND HYDROCODONE BITARTRATE [Suspect]
     Indication: PAIN IN EXTREMITY
     Dosage: ONE TABLET, DAILY
     Route: 048
     Dates: start: 20081201
  2. ULTRAM [Concomitant]
     Indication: PAIN IN EXTREMITY
     Dosage: 1 QID (PRN)
     Dates: end: 20090201
  3. CEFTIN [Concomitant]
     Indication: SINUSITIS
     Dosage: 1
     Dates: start: 20090213
  4. CYMBALTA [Concomitant]
     Indication: DEPRESSION
     Dosage: 60 MG, QD
     Dates: start: 20080101

REACTIONS (2)
  - DRUG INEFFECTIVE [None]
  - DYSPEPSIA [None]
